FAERS Safety Report 18167837 (Version 2)
Quarter: 2020Q4

REPORT INFORMATION
  Report Type: Spontaneous
  Country: DE (occurrence: DE)
  Receive Date: 20200819
  Receipt Date: 20201020
  Transmission Date: 20210113
  Serious: Yes (Life-Threatening)
  Sender: FDA-Public Use
  Company Number: DE-AUROBINDO-AUR-APL-2020-039488

PATIENT
  Sex: Female

DRUGS (1)
  1. BUCAIN HYPERBAR 5 MG/ML  SOLUTION FOR INJECTION [Suspect]
     Active Substance: BUPIVACAINE
     Indication: SPINAL ANAESTHESIA
     Dosage: UNK
     Route: 037

REACTIONS (1)
  - Drug ineffective [Unknown]
